FAERS Safety Report 4388875-6 (Version None)
Quarter: 2004Q2

REPORT INFORMATION
  Report Type: 
  Country: None (occurrence: None)
  Receive Date: 20040628
  Receipt Date: 20040615
  Transmission Date: 20050107
  Serious: Yes (Hospitalization, Other)
  Sender: FDA-Public Use
  Company Number: DE-JNJFOC-20030707066

PATIENT
  Age: 81 Year
  Sex: Female
  Weight: 65 kg

DRUGS (6)
  1. REMICADE [Suspect]
     Indication: POLYMYALGIA RHEUMATICA
     Dosage: SEE IMAGE
     Route: 042
     Dates: start: 20020604, end: 20020604
  2. REMICADE [Suspect]
     Indication: POLYMYALGIA RHEUMATICA
     Dosage: SEE IMAGE
     Route: 042
     Dates: start: 20020701, end: 20020701
  3. REMICADE [Suspect]
     Indication: POLYMYALGIA RHEUMATICA
     Dosage: SEE IMAGE
     Route: 042
     Dates: start: 20021101, end: 20021101
  4. METHOTREXATE [Concomitant]
  5. PREDNISOLONE [Concomitant]
  6. FOSAMAX [Concomitant]

REACTIONS (2)
  - LUNG SQUAMOUS CELL CARCINOMA STAGE UNSPECIFIED [None]
  - PULMONARY TUBERCULOSIS [None]
